FAERS Safety Report 10871974 (Version 1)
Quarter: 2015Q1

REPORT INFORMATION
  Report Type: Spontaneous
  Country: US (occurrence: None)
  Receive Date: 20150223
  Receipt Date: 20150223
  Transmission Date: 20150721
  Serious: Yes (Disabling)
  Sender: FDA-Public Use
  Company Number: None

PATIENT
  Age: 44 Year
  Sex: Female
  Weight: 75.3 kg

DRUGS (10)
  1. MAGNESIUM [Concomitant]
     Active Substance: MAGNESIUM
  2. KLONIPIN [Concomitant]
     Active Substance: CLONAZEPAM
  3. CYMBALTA [Concomitant]
     Active Substance: DULOXETINE HYDROCHLORIDE
  4. DULOXETINE [Suspect]
     Active Substance: DULOXETINE
     Indication: DEPRESSION
     Dosage: 60 MG 1 IMTE ONCE DAILY TAKEN BY MOUTH
     Route: 048
  5. TYROSINE [Concomitant]
     Active Substance: TYROSINE
  6. FISH OIL [Concomitant]
     Active Substance: FISH OIL
  7. TRILEPTAL [Concomitant]
     Active Substance: OXCARBAZEPINE
  8. PROZAC [Concomitant]
     Active Substance: FLUOXETINE HYDROCHLORIDE
  9. COCONUT OIL [Concomitant]
     Active Substance: COCONUT OIL
  10. MULTIVITAMIN [Concomitant]
     Active Substance: VITAMINS

REACTIONS (19)
  - Bruxism [None]
  - Suicidal ideation [None]
  - Insomnia [None]
  - Panic attack [None]
  - Drug withdrawal syndrome [None]
  - Headache [None]
  - Anxiety [None]
  - Product quality issue [None]
  - Constipation [None]
  - Crying [None]
  - Nightmare [None]
  - Confusional state [None]
  - Memory impairment [None]
  - Quality of life decreased [None]
  - Mood swings [None]
  - Agitation [None]
  - Paraesthesia [None]
  - Paranoia [None]
  - Marital problem [None]

NARRATIVE: CASE EVENT DATE: 20150214
